FAERS Safety Report 22589768 (Version 1)
Quarter: 2023Q2

REPORT INFORMATION
  Report Type: Other
  Country: FR (occurrence: FR)
  Receive Date: 20230612
  Receipt Date: 20230612
  Transmission Date: 20230722
  Serious: Yes (Other)
  Sender: FDA-Public Use
  Company Number: None

PATIENT
  Age: 83 Year
  Sex: Female
  Weight: 67 kg

DRUGS (8)
  1. OMNIPAQUE [Suspect]
     Active Substance: IOHEXOL
     Indication: Computerised tomogram head
     Dosage: 80 ML, SINGLE
     Route: 065
     Dates: start: 20230325, end: 20230325
  2. OMNIPAQUE [Suspect]
     Active Substance: IOHEXOL
     Indication: Product used for unknown indication
  3. MEROPENEM [Suspect]
     Active Substance: MEROPENEM
     Indication: Pyelonephritis acute
     Dosage: 3 GM, QD
     Route: 042
     Dates: start: 20230325, end: 20230328
  4. MEROPENEM [Suspect]
     Active Substance: MEROPENEM
     Dosage: 2 GM, QD
     Route: 042
     Dates: start: 20230329, end: 20230403
  5. FOLIC ACID [Suspect]
     Active Substance: FOLIC ACID
     Dosage: 2 DF, QD
     Route: 048
     Dates: start: 20230328
  6. FERROUS FUMARATE [Suspect]
     Active Substance: FERROUS FUMARATE
     Dosage: 1 DF, QD
     Route: 048
     Dates: start: 20230329
  7. ECONAZOLE [Concomitant]
     Active Substance: ECONAZOLE
  8. LOVENOX [Concomitant]
     Active Substance: ENOXAPARIN SODIUM

REACTIONS (2)
  - Eosinophilia [Recovered/Resolved]
  - Rash maculo-papular [Recovered/Resolved]

NARRATIVE: CASE EVENT DATE: 20230328
